FAERS Safety Report 6614900-5 (Version None)
Quarter: 2010Q1

REPORT INFORMATION
  Report Type: 
  Country: None (occurrence: None)
  Receive Date: 20100305
  Receipt Date: 20100223
  Transmission Date: 20100710
  Serious: Yes (Hospitalization)
  Sender: FDA-Public Use
  Company Number: 190756

PATIENT
  Age: 36 Year
  Sex: Male
  Weight: 113 kg

DRUGS (4)
  1. AVONEX [Suspect]
     Indication: MULTIPLE SCLEROSIS
     Route: 030
     Dates: start: 20000201, end: 20050101
  2. AVONEX [Suspect]
     Route: 030
     Dates: start: 20060101
  3. AVINZA [Concomitant]
     Indication: PAIN IN EXTREMITY
  4. MEDICATIONS (NOS) [Concomitant]

REACTIONS (8)
  - BACK DISORDER [None]
  - BOWEL MOVEMENT IRREGULARITY [None]
  - HYPOAESTHESIA [None]
  - MEMORY IMPAIRMENT [None]
  - MULTIPLE SCLEROSIS RELAPSE [None]
  - MUSCLE TWITCHING [None]
  - MUSCULAR WEAKNESS [None]
  - URINE FLOW DECREASED [None]
